FAERS Safety Report 7806304-4 (Version None)
Quarter: 2011Q4

REPORT INFORMATION
  Report Type: 
  Country: None (occurrence: None)
  Receive Date: 20111011
  Receipt Date: 20110927
  Transmission Date: 20120403
  Serious: Yes (Hospitalization)
  Sender: FDA-Public Use
  Company Number: US-BAYER-201021012NA

PATIENT
  Age: 32 Year
  Sex: Female
  Weight: 88 kg

DRUGS (6)
  1. MERIDIA [Concomitant]
     Indication: OBESITY
     Dosage: 15 MG, QD
     Route: 048
  2. PHENTERMINE [Concomitant]
     Indication: OBESITY
     Dosage: 37.5 MG, UNK
     Route: 048
  3. YASMIN [Suspect]
     Indication: OVARIAN CYST
     Dosage: UNK
     Route: 048
     Dates: start: 20060901, end: 20070301
  4. CATAFLAM [Concomitant]
     Indication: MUSCLE SPASMS
     Dosage: UNK
     Route: 048
     Dates: start: 20071001
  5. DARVOCET [Concomitant]
     Indication: MUSCLE SPASMS
     Dosage: UNK
     Route: 048
     Dates: start: 20071001
  6. IBUPROFEN [Concomitant]
     Dosage: UNK UNK, PRN
     Route: 048

REACTIONS (3)
  - PAIN [None]
  - CHOLELITHIASIS [None]
  - CHOLECYSTITIS CHRONIC [None]
